FAERS Safety Report 13863181 (Version 1)
Quarter: 2017Q3

REPORT INFORMATION
  Report Type: Spontaneous
  Country: US (occurrence: US)
  Receive Date: 20170814
  Receipt Date: 20170814
  Transmission Date: 20171127
  Serious: Yes (Hospitalization)
  Sender: FDA-Public Use
  Company Number: US-AUROBINDO-AUR-APL-2017-38731

PATIENT
  Age: 71 Year
  Sex: Male

DRUGS (5)
  1. PREDNISONE. [Concomitant]
     Active Substance: PREDNISONE
     Indication: CROHN^S DISEASE
  2. AMOXICILLIN+CLAVULANIC ACID 500/125MG [Suspect]
     Active Substance: AMOXICILLIN\CLAVULANIC ACID
     Indication: ANTIBIOTIC THERAPY
     Dosage: 500/125 MG TWICE DAILY
     Route: 065
  3. REMICADE [Concomitant]
     Active Substance: INFLIXIMAB
     Indication: CROHN^S DISEASE
  4. METRONIDAZOLE 500MG [Suspect]
     Active Substance: METRONIDAZOLE
     Indication: DIARRHOEA
     Dosage: 500 MG, 3 TIMES A DAY
     Route: 065
  5. SALICYLIC ACID. [Concomitant]
     Active Substance: SALICYLIC ACID
     Indication: CROHN^S DISEASE

REACTIONS (9)
  - Dysarthria [Recovered/Resolved]
  - Condition aggravated [Recovered/Resolved]
  - Fungal infection [Recovered/Resolved]
  - Weight decreased [Recovered/Resolved]
  - Feeling abnormal [Recovered/Resolved]
  - Blood ethanol increased [Recovered/Resolved]
  - Gait disturbance [Recovered/Resolved]
  - Fall [Recovered/Resolved]
  - Alcohol poisoning [Recovered/Resolved]
